FAERS Safety Report 21950430 (Version 1)
Quarter: 2023Q1

REPORT INFORMATION
  Report Type: Spontaneous
  Country: AU (occurrence: AU)
  Receive Date: 20230203
  Receipt Date: 20230203
  Transmission Date: 20230417
  Serious: Yes (Other)
  Sender: FDA-Public Use
  Company Number: AU-PFIZER INC-202300046462

PATIENT
  Age: 9 Year
  Sex: Female
  Weight: 56.9 kg

DRUGS (4)
  1. VINCRISTINE SULFATE [Suspect]
     Active Substance: VINCRISTINE SULFATE
     Indication: Astrocytoma
     Dosage: UNK
     Route: 065
  2. THIOGUANINE [Suspect]
     Active Substance: THIOGUANINE
     Indication: Astrocytoma
     Dosage: UNK
     Route: 065
  3. PROCARBAZINE [Suspect]
     Active Substance: PROCARBAZINE
     Indication: Astrocytoma
     Dosage: UNK
     Route: 065
  4. LOMUSTINE [Suspect]
     Active Substance: LOMUSTINE
     Indication: Astrocytoma
     Dosage: UNK
     Route: 065

REACTIONS (2)
  - Central hypothyroidism [Unknown]
  - Off label use [Unknown]
